FAERS Safety Report 4725453-0 (Version None)
Quarter: 2005Q3

REPORT INFORMATION
  Report Type: 
  Country: None (occurrence: None)
  Receive Date: 20050721
  Receipt Date: 20050531
  Transmission Date: 20060218
  Serious: No
  Sender: FDA-Public Use
  Company Number: 2005SP001126

PATIENT
  Age: 56 Year
  Sex: Male
  Weight: 77.1115 kg

DRUGS (1)
  1. LUNESTA [Suspect]
     Dosage: 2 MG;HS;ORAL
     Route: 048
     Dates: start: 20050525

REACTIONS (4)
  - DRUG INEFFECTIVE [None]
  - INSOMNIA [None]
  - NAUSEA [None]
  - SOMNOLENCE [None]
